FAERS Safety Report 5942248-0 (Version None)
Quarter: 2008Q4

REPORT INFORMATION
  Report Type: 
  Country: None (occurrence: None)
  Receive Date: 20081105
  Receipt Date: 20081030
  Transmission Date: 20090506
  Serious: Yes (Death, Other)
  Sender: FDA-Public Use
  Company Number: CZ-CELGENEUS-217-20785-08010731

PATIENT

DRUGS (12)
  1. THALOMID [Suspect]
     Indication: MULTIPLE MYELOMA
     Dosage: 200MG FOR PATIENTS UP TO 65 YEARS
     Route: 048
  2. THALOMID [Suspect]
     Dosage: 100MG, POSSIBLEY 50MG DAILY IN THE EVENING HOURS
     Route: 048
  3. THALOMID [Suspect]
     Dosage: 50-100MG DAILY FOR PATIENTS ABOVE 65 YEARS
     Route: 048
  4. DEXAMETHASONE [Suspect]
     Indication: MULTIPLE MYELOMA
     Route: 048
  5. DEXAMETHASONE [Suspect]
     Route: 048
  6. CYCLOPHOSPHAMIDE [Suspect]
     Indication: MULTIPLE MYELOMA
     Route: 051
  7. CYCLOPHOSPHAMIDE [Suspect]
     Route: 065
  8. LOW-MOLECULAR HEPARIN [Concomitant]
     Route: 065
  9. ENOXAPARIN SODIUM [Concomitant]
     Route: 058
  10. FRAXIPARIN [Concomitant]
     Route: 058
  11. OMEPRAZOLE [Concomitant]
     Indication: PROPHYLAXIS
     Route: 048
  12. POTASSIUM CHLORIDE [Concomitant]
     Indication: PROPHYLAXIS
     Route: 048

REACTIONS (10)
  - BRONCHOPNEUMONIA [None]
  - DEEP VEIN THROMBOSIS [None]
  - DIABETIC HYPERGLYCAEMIC COMA [None]
  - MULTIMORBIDITY [None]
  - MULTIPLE MYELOMA [None]
  - NEUTROPENIA [None]
  - PULMONARY EMBOLISM [None]
  - RASH [None]
  - RENAL FAILURE [None]
  - SALMONELLA SEPSIS [None]
